FAERS Safety Report 24958373 (Version 1)
Quarter: 2025Q1

REPORT INFORMATION
  Report Type: Spontaneous
  Country: IT (occurrence: IT)
  Receive Date: 20250212
  Receipt Date: 20250212
  Transmission Date: 20250408
  Serious: Yes (Death, Other)
  Sender: RANBAXY
  Company Number: IT-SUN PHARMACEUTICAL INDUSTRIES LTD-2025RR-493268

PATIENT
  Age: 64 Year
  Sex: Female

DRUGS (2)
  1. BICALUTAMIDE [Suspect]
     Active Substance: BICALUTAMIDE
     Indication: Neoplasm malignant
     Dosage: 50 MILLIGRAM, QD
     Route: 065
     Dates: start: 202110
  2. TRIPTORELIN [Suspect]
     Active Substance: TRIPTORELIN
     Indication: Neoplasm malignant
     Route: 065
     Dates: start: 202110

REACTIONS (2)
  - Condition aggravated [Unknown]
  - Disease progression [Fatal]
